FAERS Safety Report 12483468 (Version 3)
Quarter: 2016Q3

REPORT INFORMATION
  Report Type: Spontaneous
  Country: JP (occurrence: JP)
  Receive Date: 20160621
  Receipt Date: 20160712
  Transmission Date: 20161109
  Serious: Yes (Death)
  Sender: FDA-Public Use
  Company Number: JP-SA-2016SA098289

PATIENT
  Age: 73 Year
  Sex: Male

DRUGS (7)
  1. NICORANDIL [Suspect]
     Active Substance: NICORANDIL
     Indication: MYOCARDIAL INFARCTION
     Route: 048
     Dates: end: 20150119
  2. LIVALO [Suspect]
     Active Substance: PITAVASTATIN CALCIUM
     Indication: HYPERLIPIDAEMIA
     Route: 048
     Dates: end: 20150119
  3. SUINY [Suspect]
     Active Substance: ANAGLIPTIN
     Indication: TYPE 2 DIABETES MELLITUS
     Route: 048
     Dates: start: 20131225, end: 20150119
  4. PRADAXA [Suspect]
     Active Substance: DABIGATRAN ETEXILATE MESYLATE
     Indication: ATRIAL FIBRILLATION
     Route: 048
     Dates: end: 20150119
  5. SEIBULE [Suspect]
     Active Substance: MIGLITOL
     Indication: TYPE 2 DIABETES MELLITUS
     Route: 048
     Dates: end: 20150119
  6. ARTIST [Suspect]
     Active Substance: CARVEDILOL
     Indication: MYOCARDIAL INFARCTION
     Route: 048
     Dates: end: 20150119
  7. LANTUS [Suspect]
     Active Substance: INSULIN GLARGINE
     Indication: TYPE 2 DIABETES MELLITUS
     Route: 058
     Dates: start: 20141222, end: 20150119

REACTIONS (1)
  - Acute myocardial infarction [Fatal]

NARRATIVE: CASE EVENT DATE: 20150119
